FAERS Safety Report 11914148 (Version 2)
Quarter: 2016Q1

REPORT INFORMATION
  Report Type: Spontaneous
  Country: US (occurrence: US)
  Receive Date: 20160113
  Receipt Date: 20160211
  Transmission Date: 20160526
  Serious: Yes (Hospitalization, Other)
  Sender: FDA-Public Use
  Company Number: US-009507513-1601USA003515

PATIENT
  Sex: Female

DRUGS (3)
  1. PROTONIX [Concomitant]
     Active Substance: PANTOPRAZOLE SODIUM
     Dosage: 40 MG, UNK
     Route: 048
  2. NUVARING [Suspect]
     Active Substance: ETHINYL ESTRADIOL\ETONOGESTREL
     Indication: ENDOMETRIOSIS
     Dosage: 0.12-0.015 MG/24 HR, PLACE ONE EACH VAGINALLY ONCE A WEEK
     Route: 067
     Dates: end: 201501
  3. CIPRO [Concomitant]
     Active Substance: CIPROFLOXACIN HYDROCHLORIDE
     Dosage: 500 MG, BID
     Route: 048

REACTIONS (6)
  - Pulmonary embolism [Unknown]
  - Deep vein thrombosis [Unknown]
  - Depression [Unknown]
  - Off label use [Unknown]
  - Anxiety [Unknown]
  - Antiphospholipid antibodies positive [Unknown]

NARRATIVE: CASE EVENT DATE: 20150127
